FAERS Safety Report 6085509-X (Version None)
Quarter: 2009Q1

REPORT INFORMATION
  Report Type: 
  Country: None (occurrence: None)
  Receive Date: 20090218
  Receipt Date: 20090205
  Transmission Date: 20090719
  Serious: Yes (Death, Hospitalization)
  Sender: FDA-Public Use
  Company Number: 200910871GPV

PATIENT
  Age: 62 Year
  Sex: Female

DRUGS (3)
  1. FLUDARA [Suspect]
     Indication: CHRONIC LYMPHOCYTIC LEUKAEMIA
     Dosage: 57.60 MG
     Route: 048
     Dates: start: 20081001, end: 20081126
  2. MACCAMPATH          (ALEMTUZUMAB) [Suspect]
     Indication: CHRONIC LYMPHOCYTIC LEUKAEMIA
     Dosage: 30 MG  SC
     Route: 058
     Dates: start: 20081001, end: 20081126
  3. CYCLOPHOSPHAMIDE [Suspect]
     Indication: CHRONIC LYMPHOCYTIC LEUKAEMIA
     Dosage: 360 MG;ORAL
     Route: 048
     Dates: start: 20081001, end: 20081126

REACTIONS (4)
  - CARDIAC FAILURE [None]
  - FEBRILE NEUTROPENIA [None]
  - SUDDEN DEATH [None]
  - THROMBOCYTOPENIA [None]
